FAERS Safety Report 19725238 (Version 1)
Quarter: 2021Q3

REPORT INFORMATION
  Report Type: Spontaneous
  Country: US (occurrence: US)
  Receive Date: 20210819
  Receipt Date: 20210819
  Transmission Date: 20211014
  Serious: No
  Sender: FDA-Public Use
  Company Number: None

PATIENT
  Age: 60 Year
  Sex: Male
  Weight: 117.9 kg

DRUGS (12)
  1. ASPIRIN. [Concomitant]
     Active Substance: ASPIRIN
  2. PROCHLORPERAZINE. [Concomitant]
     Active Substance: PROCHLORPERAZINE
  3. HYDROMORPHONE [Concomitant]
     Active Substance: HYDROMORPHONE
  4. NOVOLOG [Concomitant]
     Active Substance: INSULIN ASPART
  5. METOPROLOL. [Concomitant]
     Active Substance: METOPROLOL
  6. SILDENAFIL. [Concomitant]
     Active Substance: SILDENAFIL
  7. SUTENT [Suspect]
     Active Substance: SUNITINIB MALATE
     Indication: RENAL CELL CARCINOMA
     Route: 048
     Dates: start: 20210621
  8. AMLODIPINE [Concomitant]
     Active Substance: AMLODIPINE BESYLATE
  9. PREDNISONE. [Concomitant]
     Active Substance: PREDNISONE
  10. LANTUS [Concomitant]
     Active Substance: INSULIN GLARGINE
  11. TADALAFIL. [Concomitant]
     Active Substance: TADALAFIL
  12. NIACIN. [Concomitant]
     Active Substance: NIACIN

REACTIONS (1)
  - Full blood count decreased [None]

NARRATIVE: CASE EVENT DATE: 20210819
